FAERS Safety Report 9440557 (Version 3)
Quarter: 2013Q3

REPORT INFORMATION
  Report Type: Spontaneous
  Country: IT (occurrence: IT)
  Receive Date: 20130805
  Receipt Date: 20130826
  Transmission Date: 20140515
  Serious: Yes (Hospitalization)
  Sender: FDA-Public Use
  Company Number: IT-ASTRAZENECA-2013SE56769

PATIENT
  Age: 18082 Day
  Sex: Male

DRUGS (11)
  1. OMEPRAZOLE [Suspect]
     Indication: PROPHYLAXIS
     Route: 042
     Dates: start: 20130521, end: 20130521
  2. PERFALGAN [Suspect]
     Indication: POSTOPERATIVE ANALGESIA
     Route: 042
     Dates: start: 20130521
  3. PERFALGAN [Suspect]
     Indication: POSTOPERATIVE ANALGESIA
     Route: 042
     Dates: end: 20130522
  4. PROPOFOL (KABI) (NON AZ PRODUCT) [Suspect]
     Indication: ANAESTHESIA
     Dosage: 4MG/KG/MINUTE INTRAVENOUS, 10 MG/ML EMULSION FOR INJECTION OR INFUSION 5 VIALS OF 20 ML
     Route: 042
     Dates: start: 20130521, end: 20130521
  5. REMIFENTANIL (TEVA) (NON-AZ PRODUCT) [Suspect]
     Indication: ANAESTHESIA
     Dosage: 0.4 MICROGRAMS/KG/MIN, 5 MG POWDER FOR CONCENTRATE FOR SOLUTION FOR INJECTION OR INFUSION
     Route: 042
     Dates: start: 20130521, end: 20130521
  6. MORPHIN (MOLTENI) (NON AZ PRODUCT) [Suspect]
     Dosage: 10 MG /ML SOLUTION FOR INJECTION 5 VIALS 1 ML
     Route: 042
     Dates: start: 20130821, end: 20130821
  7. TORADOL [Suspect]
     Indication: POSTOPERATIVE ANALGESIA
     Route: 042
     Dates: start: 20130521
  8. TORADOL [Suspect]
     Indication: POSTOPERATIVE ANALGESIA
     Route: 042
     Dates: end: 20130522
  9. IVOR [Suspect]
     Indication: THROMBOSIS PROPHYLAXIS
     Route: 058
     Dates: start: 20130521, end: 20130524
  10. CEFAMEZIN [Suspect]
     Indication: ANTIBIOTIC PROPHYLAXIS
     Route: 042
     Dates: start: 20130521, end: 20130522
  11. ESMERON [Suspect]
     Indication: ANAESTHESIA
     Dosage: 10MG/ML INJECTABLE SOLUTION, 50 MG TOTAL,  40MG + 10MG INTRAVENOUS
     Route: 042
     Dates: start: 20130521, end: 20130521

REACTIONS (1)
  - Renal failure acute [Recovered/Resolved]
